FAERS Safety Report 5658820-1 (Version None)
Quarter: 2008Q1

REPORT INFORMATION
  Report Type: 
  Country: None (occurrence: None)
  Receive Date: 20080310
  Receipt Date: 20070822
  Transmission Date: 20080703
  Serious: No
  Sender: FDA-Public Use
  Company Number: US-BAYER-200711221BCC

PATIENT
  Age: 86 Year
  Sex: Female
  Weight: 60 kg

DRUGS (2)
  1. ALEVE [Suspect]
     Indication: BONE PAIN
     Dosage: TOTAL DAILY DOSE: 220 MG  UNIT DOSE: 220 MG
     Route: 048
     Dates: start: 20070420
  2. RELAFIN [Concomitant]
     Route: 048

REACTIONS (2)
  - SOMNOLENCE [None]
  - THROAT IRRITATION [None]
